FAERS Safety Report 10064357 (Version 1)
Quarter: 2014Q2

REPORT INFORMATION
  Report Type: Spontaneous
  Country: US (occurrence: US)
  Receive Date: 20140408
  Receipt Date: 20140408
  Transmission Date: 20141212
  Serious: No
  Sender: FDA-Public Use
  Company Number: US-TEVA-473777USA

PATIENT
  Age: 71 Year
  Sex: Male
  Weight: 63.56 kg

DRUGS (1)
  1. PROAIR HFA [Suspect]
     Indication: COUGH
     Dates: start: 20140401, end: 20140401

REACTIONS (2)
  - Cough [Recovered/Resolved]
  - Dyspnoea [Recovered/Resolved]
